FAERS Safety Report 7254287-0 (Version None)
Quarter: 2011Q1

REPORT INFORMATION
  Report Type: 
  Country: None (occurrence: None)
  Receive Date: 20110129
  Receipt Date: 20100114
  Transmission Date: 20110831
  Serious: No
  Sender: FDA-Public Use
  Company Number: US-ABBOTT-10P-163-0620055-00

PATIENT
  Sex: Male
  Weight: 113.95 kg

DRUGS (6)
  1. HUMIRA [Suspect]
     Dates: start: 20091218, end: 20100101
  2. PROTONIX [Concomitant]
     Indication: CROHN'S DISEASE
     Dosage: UNKNOWN
  3. ZOFRAN [Concomitant]
     Indication: NAUSEA
     Route: 065
  4. VITAMIN B-12 [Concomitant]
     Indication: CROHN'S DISEASE
     Dosage: UNKNOWN
     Route: 065
  5. HUMIRA [Suspect]
     Indication: CROHN'S DISEASE
     Dosage: INJECTIONS IN THE THIGHS
     Route: 058
     Dates: start: 20091204, end: 20091204
  6. SUBCUTANEOUS INFUSION [Concomitant]
     Indication: PAIN
     Route: 058
     Dates: start: 20081001

REACTIONS (2)
  - INFUSION SITE PAIN [None]
  - INFUSION SITE SWELLING [None]
